FAERS Safety Report 8828407 (Version 3)
Quarter: 2012Q4

REPORT INFORMATION
  Report Type: 
  Country: JP (occurrence: JP)
  Receive Date: 20121005
  Receipt Date: 20121112
  Transmission Date: 20130627
  Serious: Yes (Hospitalization)
  Sender: FDA-Public Use
  Company Number: JP-ELI_LILLY_AND_COMPANY-JP201210000380

PATIENT
  Age: 89 Year
  Sex: Male
  Weight: 67 kg

DRUGS (7)
  1. ADCIRCA [Suspect]
     Indication: PULMONARY HYPERTENSION
     Dosage: 20 mg, qd
     Route: 048
     Dates: start: 20120626, end: 20120901
  2. ZYLORIC [Concomitant]
     Indication: HYPERURICAEMIA
     Dosage: 100 mg, bid
     Route: 048
     Dates: start: 20060913
  3. TAKEPRON [Concomitant]
     Indication: GASTRITIS PROPHYLAXIS
     Dosage: 15 mg, qd
     Route: 048
     Dates: start: 20120618, end: 20120901
  4. BLOPRESS [Concomitant]
     Indication: HYPERTENSION
     Dosage: 8 mg, qd
     Route: 048
     Dates: start: 20090225
  5. FUROSEMIDE [Concomitant]
     Indication: LYMPHOEDEMA
     Dosage: 40 mg, qd
     Route: 048
     Dates: start: 20120618
  6. NITRENDIPINE [Concomitant]
     Indication: HYPERTENSION
     Dosage: 40 mg, qd
     Route: 048
     Dates: start: 20120618
  7. WARFARIN [Concomitant]
     Indication: ATRIAL FIBRILLATION
     Dosage: 1 mg, qd
     Route: 048
     Dates: start: 20100108

REACTIONS (1)
  - Pancytopenia [Recovering/Resolving]
